FAERS Safety Report 12312935 (Version 1)
Quarter: 2016Q2

REPORT INFORMATION
  Report Type: Spontaneous
  Country: US (occurrence: None)
  Receive Date: 20160427
  Receipt Date: 20160427
  Transmission Date: 20160815
  Serious: Yes (Life-Threatening)
  Sender: FDA-Public Use
  Company Number: None

PATIENT
  Age: 65 Year
  Sex: Female
  Weight: 102 kg

DRUGS (1)
  1. DOFETILIDE, 500 PFIZERR [Suspect]
     Active Substance: DOFETILIDE
     Indication: TORSADE DE POINTES
     Route: 048
     Dates: start: 20160209, end: 20160218

REACTIONS (4)
  - Blood magnesium decreased [None]
  - Electrocardiogram QT prolonged [None]
  - Syncope [None]
  - Atrial fibrillation [None]

NARRATIVE: CASE EVENT DATE: 20160218
